FAERS Safety Report 5255129-5 (Version None)
Quarter: 2007Q1

REPORT INFORMATION
  Report Type: 
  Country: None (occurrence: None)
  Receive Date: 20070228
  Receipt Date: 20070220
  Transmission Date: 20070707
  Serious: Yes (Hospitalization)
  Sender: FDA-Public Use
  Company Number: 2007SP002105

PATIENT
  Age: 72 Year
  Sex: Male
  Weight: 75 kg

DRUGS (5)
  1. CELESTONE [Suspect]
     Indication: CHRONIC SINUSITIS
     Dosage: 2 DF;QD;PO
     Route: 048
     Dates: start: 20061201, end: 20070119
  2. CLARITHROMYCIN [Suspect]
     Indication: CHRONIC SINUSITIS
     Dosage: 400 MG; PO
     Route: 048
     Dates: start: 20061214, end: 20070119
  3. RIZABEN (TRANILAST) [Suspect]
     Indication: CHRONIC SINUSITIS
     Dosage: 200 MG; PO
     Route: 048
     Dates: start: 20061218, end: 20070119
  4. MUCOSTA (REBAMIPIDE) [Suspect]
     Indication: CHRONIC SINUSITIS
     Dosage: 300 MG; PO
     Route: 048
     Dates: start: 20061201, end: 20070119
  5. DIOVAN [Suspect]
     Indication: HYPERTENSION
     Dosage: 40 MG; PO
     Route: 048
     Dates: end: 20070119

REACTIONS (4)
  - CHRONIC SINUSITIS [None]
  - HAEMATURIA [None]
  - HEPATITIS [None]
  - NASAL POLYPS [None]
